FAERS Safety Report 5132392-2 (Version None)
Quarter: 2006Q4

REPORT INFORMATION
  Report Type: 
  Country: None (occurrence: None)
  Receive Date: 20061016
  Receipt Date: 20060929
  Transmission Date: 20070319
  Serious: Yes (Other)
  Sender: FDA-Public Use
  Company Number: 2006ADE/CIPRO-022

PATIENT
  Age: 55 Year
  Sex: Female

DRUGS (12)
  1. CIPROFLOXACIN HCL [Suspect]
     Indication: LOWER RESPIRATORY TRACT INFECTION
     Dosage: 1000 MG, ORAL
     Route: 048
     Dates: start: 20060804, end: 20060807
  2. CALCIUM CARBONATE [Concomitant]
  3. IPRATROPIUM BROMIDE [Concomitant]
  4. CLAIITHROMYCIN [Concomitant]
  5. ALENDRONIC ACID [Concomitant]
  6. LANSOPRAZOLE [Concomitant]
  7. LEVOFLOXACIN [Concomitant]
  8. PREDNISOLONE [Concomitant]
  9. SALBUTAMOL [Concomitant]
  10. SAMETEROL /OTHER DRUGS FOR OBSTRUCTIVE AIRWAY DISEASES [Concomitant]
  11. MONTELUKAST [Concomitant]
  12. THEOPHYLLINE [Concomitant]

REACTIONS (1)
  - TENDONITIS [None]
